FAERS Safety Report 6556803-0 (Version None)
Quarter: 2010Q1

REPORT INFORMATION
  Report Type: 
  Country: None (occurrence: None)
  Receive Date: 20100128
  Receipt Date: 20100118
  Transmission Date: 20100710
  Serious: Yes (Other)
  Sender: FDA-Public Use
  Company Number: PHHY2010GB03860

PATIENT
  Sex: Male

DRUGS (1)
  1. VOLTAROL RAPID [Suspect]
     Dosage: 50 MG FOR 2 WEEKS
     Route: 048

REACTIONS (3)
  - DYSPNOEA [None]
  - MOUTH ULCERATION [None]
  - ORAL PAIN [None]
